FAERS Safety Report 10154772 (Version 1)
Quarter: 2014Q2

REPORT INFORMATION
  Report Type: Spontaneous
  Country: US (occurrence: None)
  Receive Date: 20140505
  Receipt Date: 20140505
  Transmission Date: 20141212
  Serious: No
  Sender: FDA-Public Use
  Company Number: None

PATIENT
  Age: 28 Year
  Sex: Male
  Weight: 84.82 kg

DRUGS (3)
  1. PROPOFOL [Suspect]
  2. VITAMIN SUPPLEMENT [Concomitant]
  3. FISH OIL [Concomitant]

REACTIONS (3)
  - Pyrexia [None]
  - Chills [None]
  - Vomiting [None]
